FAERS Safety Report 26219104 (Version 1)
Quarter: 2025Q4

REPORT INFORMATION
  Report Type: Spontaneous
  Country: JP (occurrence: JP)
  Receive Date: 20251231
  Receipt Date: 20251231
  Transmission Date: 20260117
  Serious: Yes (Other)
  Sender: MERCK SHARP & DOHME LLC
  Company Number: JP-009507513-2359655

PATIENT
  Age: 40 Year
  Sex: Female

DRUGS (3)
  1. ISENTRESS [Suspect]
     Active Substance: RALTEGRAVIR POTASSIUM
     Indication: HIV infection
     Dosage: STRENGTH: 600 MG
     Route: 048
     Dates: start: 2025
  2. ISENTRESS [Suspect]
     Active Substance: RALTEGRAVIR POTASSIUM
     Indication: HIV infection
     Dosage: STRENGTH: 400 MG
     Route: 048
     Dates: start: 2025
  3. Descovy [tenofovir alafenamide + emtricitabine (TAF/FTC)] [Concomitant]
     Indication: HIV infection
     Route: 048

REACTIONS (2)
  - Abortion early [Unknown]
  - Maternal exposure during pregnancy [Recovered/Resolved]

NARRATIVE: CASE EVENT DATE: 20250101
